FAERS Safety Report 20141623 (Version 1)
Quarter: 2021Q4

REPORT INFORMATION
  Report Type: Spontaneous
  Country: US (occurrence: None)
  Receive Date: 20211202
  Receipt Date: 20211202
  Transmission Date: 20220303
  Serious: No
  Sender: FDA-Public Use
  Company Number: None

PATIENT
  Age: 64 Year
  Sex: Female

DRUGS (1)
  1. EVEROLIMUS [Suspect]
     Active Substance: EVEROLIMUS

REACTIONS (4)
  - Product blister packaging issue [None]
  - Product design issue [None]
  - Accidental exposure to product packaging [None]
  - Throat tightness [None]

NARRATIVE: CASE EVENT DATE: 20211130
